FAERS Safety Report 6393908-1 (Version None)
Quarter: 2009Q4

REPORT INFORMATION
  Report Type: 
  Country: None (occurrence: None)
  Receive Date: 20091008
  Receipt Date: 20090928
  Transmission Date: 20100525
  Serious: Yes (Hospitalization, Disabling)
  Sender: FDA-Public Use
  Company Number: JP-JNJFOC-20090500147

PATIENT
  Sex: Female
  Weight: 52 kg

DRUGS (22)
  1. GOLIMUMAB [Suspect]
     Route: 058
  2. GOLIMUMAB [Suspect]
     Route: 058
  3. GOLIMUMAB [Suspect]
     Route: 058
  4. GOLIMUMAB [Suspect]
     Route: 058
  5. GOLIMUMAB [Suspect]
     Route: 058
  6. GOLIMUMAB [Suspect]
     Route: 058
  7. GOLIMUMAB [Suspect]
     Route: 058
  8. GOLIMUMAB [Suspect]
     Indication: RHEUMATOID ARTHRITIS
     Route: 058
  9. RHEUMATREX [Suspect]
     Route: 048
  10. RHEUMATREX [Suspect]
     Route: 048
  11. RHEUMATREX [Suspect]
     Route: 048
  12. RHEUMATREX [Suspect]
     Route: 048
  13. RHEUMATREX [Suspect]
     Route: 048
  14. RHEUMATREX [Suspect]
     Indication: RHEUMATOID ARTHRITIS
     Route: 048
  15. MOBIC [Concomitant]
     Indication: RHEUMATOID ARTHRITIS
     Route: 048
  16. FOLIAMIN [Concomitant]
     Indication: PROPHYLAXIS
     Route: 048
  17. KETOPROFEN [Concomitant]
     Indication: RHEUMATOID ARTHRITIS
     Route: 003
  18. ISONIAZID [Concomitant]
     Indication: ANTIBIOTIC PROPHYLAXIS
     Route: 048
  19. PYDOXAL [Concomitant]
     Indication: PROPHYLAXIS
     Route: 048
  20. BUSCOPAN [Concomitant]
     Indication: ABDOMINAL PAIN
     Route: 048
  21. MAGMITT [Concomitant]
     Indication: CONSTIPATION
     Route: 048
  22. SENNARIDE [Concomitant]
     Indication: CONSTIPATION
     Route: 048

REACTIONS (1)
  - BONE NEOPLASM [None]
